FAERS Safety Report 6245524-X (Version None)
Quarter: 2009Q2

REPORT INFORMATION
  Report Type: 
  Country: None (occurrence: None)
  Receive Date: 20090625
  Receipt Date: 20090617
  Transmission Date: 20091009
  Serious: Yes (Death, Hospitalization)
  Sender: FDA-Public Use
  Company Number: US-CELGENEUS-163-50794-09061398

PATIENT
  Age: 79 Year
  Sex: Male

DRUGS (3)
  1. VIDAZA [Suspect]
     Route: 058
  2. GRANULOCYTE-MACROPHAGE COLONY STIMULATING FACTOR [Concomitant]
     Indication: NEUTROPENIA
     Route: 058
  3. GRANULOCYTE-MACROPHAGE COLONY STIMULATING FACTOR [Concomitant]

REACTIONS (4)
  - DEATH [None]
  - FEBRILE NEUTROPENIA [None]
  - HERPES ZOSTER [None]
  - VISUAL IMPAIRMENT [None]
